FAERS Safety Report 23101606 (Version 7)
Quarter: 2024Q1

REPORT INFORMATION
  Report Type: Report from Study
  Country: CA (occurrence: CA)
  Receive Date: 20231025
  Receipt Date: 20240301
  Transmission Date: 20240410
  Serious: Yes (Death, Hospitalization, Other)
  Sender: FDA-Public Use
  Company Number: CA-ABBVIE-5463379

PATIENT
  Sex: Male
  Weight: 110 kg

DRUGS (8)
  1. LUPRON DEPOT [Suspect]
     Active Substance: LEUPROLIDE ACETATE
     Indication: Prostate cancer
     Route: 030
     Dates: start: 201212, end: 20231020
  2. XGEVA [Concomitant]
     Active Substance: DENOSUMAB
     Indication: Product used for unknown indication
     Route: 058
  3. XGEVA [Concomitant]
     Active Substance: DENOSUMAB
     Indication: Product used for unknown indication
     Route: 058
  4. GLICLAZIDE [Concomitant]
     Active Substance: GLICLAZIDE
     Indication: Diabetes mellitus
     Route: 048
  5. TAXOL [Concomitant]
     Active Substance: PACLITAXEL
     Indication: Product used for unknown indication
  6. METFORMIN [Concomitant]
     Active Substance: METFORMIN HYDROCHLORIDE
     Indication: Diabetes mellitus
     Route: 048
  7. RIVAROXABAN [Concomitant]
     Active Substance: RIVAROXABAN
     Indication: Product used for unknown indication
     Route: 048
  8. IRBESARTAN [Concomitant]
     Active Substance: IRBESARTAN
     Indication: Hypertension
     Route: 048

REACTIONS (46)
  - Death [Fatal]
  - Hepatic steatosis [Unknown]
  - Pain [Unknown]
  - Prostatic specific antigen increased [Unknown]
  - Hydronephrosis [Unknown]
  - Mobility decreased [Unknown]
  - Platelet count abnormal [Unknown]
  - Arteriosclerosis [Unknown]
  - Arteriosclerosis coronary artery [Unknown]
  - Lymphadenectomy [Unknown]
  - Atelectasis [Unknown]
  - Bone cancer metastatic [Unknown]
  - Bladder dilatation [Unknown]
  - Neutrophil count abnormal [Unknown]
  - Splenic calcification [Unknown]
  - Impaired quality of life [Unknown]
  - Weight decreased [Unknown]
  - Gynaecomastia [Unknown]
  - Dyspnoea exertional [Unknown]
  - Benign neoplasm of adrenal gland [Unknown]
  - Mass [Unknown]
  - Cholelithiasis [Unknown]
  - Pulmonary mass [Unknown]
  - Arthralgia [Unknown]
  - Urosepsis [Unknown]
  - Bone scan abnormal [Unknown]
  - Decreased activity [Unknown]
  - Bladder disorder [Unknown]
  - Splenic granuloma [Unknown]
  - Lymphadenitis [Unknown]
  - Musculoskeletal discomfort [Unknown]
  - Lymphadenopathy [Unknown]
  - Central venous catheterisation [Unknown]
  - Loss of personal independence in daily activities [Unknown]
  - Granuloma [Unknown]
  - Decreased appetite [Unknown]
  - Urine output decreased [Unknown]
  - Knee arthroplasty [Unknown]
  - Wheelchair user [Unknown]
  - Metastases to central nervous system [Unknown]
  - Palliative care [Unknown]
  - Fatigue [Unknown]
  - Confusional state [Unknown]
  - Urinary retention [Unknown]
  - Prostate cancer metastatic [Unknown]
  - Asthenia [Unknown]

NARRATIVE: CASE EVENT DATE: 20160101
